FAERS Safety Report 10196194 (Version 1)
Quarter: 2014Q2

REPORT INFORMATION
  Report Type: Spontaneous
  Country: GB (occurrence: None)
  Receive Date: 20140522
  Receipt Date: 20140522
  Transmission Date: 20141212
  Serious: Yes (Other)
  Sender: FDA-Public Use
  Company Number: GB-DEXPHARM-20140260

PATIENT
  Age: 69 Year
  Sex: Female

DRUGS (4)
  1. OMEPRAZOLE CAPSULE [Suspect]
     Indication: GASTROOESOPHAGEAL REFLUX DISEASE
  2. AMIODIPINE [Concomitant]
  3. CITALOPRAM [Concomitant]
  4. CO-CODAMOL [Concomitant]

REACTIONS (2)
  - Staphylococcal infection [None]
  - Rash [None]
